FAERS Safety Report 6545021-8 (Version None)
Quarter: 2010Q1

REPORT INFORMATION
  Report Type: 
  Country: None (occurrence: None)
  Receive Date: 20100121
  Receipt Date: 20100118
  Transmission Date: 20100710
  Serious: Yes (Hospitalization)
  Sender: FDA-Public Use
  Company Number: A0840382A

PATIENT
  Age: 68 Year
  Sex: Male
  Weight: 102.7 kg

DRUGS (1)
  1. ROSIGLITAZONE MALEATE [Suspect]
     Indication: DIABETES MELLITUS
     Route: 048

REACTIONS (6)
  - CARDIAC FAILURE CONGESTIVE [None]
  - DIABETES MELLITUS [None]
  - OXYGEN SUPPLEMENTATION [None]
  - PULMONARY OEDEMA [None]
  - RESUSCITATION [None]
  - TRAUMATIC LUNG INJURY [None]
